FAERS Safety Report 25938843 (Version 1)
Quarter: 2025Q4

REPORT INFORMATION
  Report Type: Report from Study
  Country: EU (occurrence: EU)
  Receive Date: 20251019
  Receipt Date: 20251019
  Transmission Date: 20260117
  Serious: Yes (Death)
  Sender: ABBVIE
  Company Number: EU-ABBVIE-6509171

PATIENT
  Age: 84 Year
  Sex: Male

DRUGS (2)
  1. CARBIDOPA [Suspect]
     Active Substance: CARBIDOPA
     Indication: Parkinson^s disease
     Dosage: DAILY DOSE: 1.388 MG/DAY, MD: 8.4ML+3ML, CR: 3.8ML/H (15H), ED: 2ML
     Route: 050
     Dates: start: 20191007
  2. CARBIDOPA [Suspect]
     Active Substance: CARBIDOPA

REACTIONS (1)
  - General physical health deterioration [Fatal]

NARRATIVE: CASE EVENT DATE: 20251001
